FAERS Safety Report 16397671 (Version 2)
Quarter: 2019Q2

REPORT INFORMATION
  Report Type: Spontaneous
  Country: JP (occurrence: JP)
  Receive Date: 20190606
  Receipt Date: 20190626
  Transmission Date: 20190711
  Serious: Yes (Hospitalization, Other)
  Sender: FDA-Public Use
  Company Number: JP-GLAXOSMITHKLINE-JP2019JPN081288

PATIENT
  Age: 71 Year
  Sex: Female
  Weight: 38 kg

DRUGS (6)
  1. VALTREX [Suspect]
     Active Substance: VALACYCLOVIR HYDROCHLORIDE
     Indication: ANTIVIRAL PROPHYLAXIS
     Dosage: 250 MG, QD
     Route: 048
     Dates: start: 20190504, end: 20190505
  2. MENATETRENONE CAPSULES [Concomitant]
     Dosage: 45 MG, 1D
     Route: 048
  3. CILOSTAZOL. [Concomitant]
     Active Substance: CILOSTAZOL
     Dosage: 100 MG, 1D
     Route: 048
  4. CLOPIDOGREL SULFATE TABLETS [Concomitant]
     Dosage: 75 MG, 1D
     Route: 048
  5. EPALRESTAT [Concomitant]
     Active Substance: EPALRESTAT
     Dosage: 150 MG, 1D
     Route: 048
  6. RABEPRAZOLE SODIUM TABLETS [Concomitant]
     Dosage: 10 MG, 1D
     Route: 048

REACTIONS (5)
  - Toxic encephalopathy [Recovered/Resolved]
  - Vomiting [Recovered/Resolved]
  - Depressed level of consciousness [Recovered/Resolved]
  - Product use in unapproved indication [Unknown]
  - Dysarthria [Recovered/Resolved]

NARRATIVE: CASE EVENT DATE: 20190504
